FAERS Safety Report 21588852 (Version 1)
Quarter: 2022Q4

REPORT INFORMATION
  Report Type: Report from Study
  Country: US (occurrence: US)
  Receive Date: 20221114
  Receipt Date: 20221114
  Transmission Date: 20230113
  Serious: No
  Sender: FDA-Public Use
  Company Number: US-ABBVIE-4191627

PATIENT
  Age: 52 Year
  Sex: Female

DRUGS (1)
  1. SKYRIZI [Suspect]
     Active Substance: RISANKIZUMAB-RZAA
     Indication: Psoriasis
     Dosage: SECOND SKYRIZI SHOT
     Route: 058
     Dates: start: 20221031

REACTIONS (9)
  - Psoriasis [Not Recovered/Not Resolved]
  - Joint noise [Unknown]
  - Cellulitis [Unknown]
  - Rash papular [Unknown]
  - Blister [Unknown]
  - Urticaria [Unknown]
  - Joint warmth [Unknown]
  - Peripheral swelling [Unknown]
  - Pain in extremity [Unknown]

NARRATIVE: CASE EVENT DATE: 20221101
